FAERS Safety Report 12624255 (Version 5)
Quarter: 2017Q1

REPORT INFORMATION
  Report Type: Spontaneous
  Country: US (occurrence: US)
  Receive Date: 20160805
  Receipt Date: 20170329
  Transmission Date: 20170428
  Serious: No
  Sender: FDA-Public Use
  Company Number: PHHY2016US107362

PATIENT
  Sex: Female
  Weight: 47.62 kg

DRUGS (2)
  1. ONDANSETRON HYDROCHLORIDE. [Suspect]
     Active Substance: ONDANSETRON HYDROCHLORIDE
     Indication: VOMITING IN PREGNANCY
     Route: 048
  2. ONDANSETRON [Suspect]
     Active Substance: ONDANSETRON
     Indication: VOMITING IN PREGNANCY
     Dosage: 8 MG, QD
     Route: 065
     Dates: start: 20140522, end: 20140620

REACTIONS (4)
  - Maternal exposure during pregnancy [Unknown]
  - Product use issue [Unknown]
  - Pain [Unknown]
  - Emotional distress [Unknown]
